FAERS Safety Report 24248597 (Version 5)
Quarter: 2025Q4

REPORT INFORMATION
  Report Type: Report from Study
  Country: US (occurrence: US)
  Receive Date: 20240826
  Receipt Date: 20251231
  Transmission Date: 20260117
  Serious: Yes (Hospitalization, Other)
  Sender: PFIZER
  Company Number: US-PFIZER INC-202400242216

PATIENT
  Age: 76 Year
  Sex: Female

DRUGS (1)
  1. XELJANZ XR [Suspect]
     Active Substance: TOFACITINIB CITRATE
     Dosage: 11 MG
     Route: 048

REACTIONS (7)
  - Knee arthroplasty [Unknown]
  - Wrist fracture [Unknown]
  - Near death experience [Unknown]
  - Pulmonary oedema [Unknown]
  - Arthritis [Unknown]
  - Gait inability [Unknown]
  - Memory impairment [Unknown]
